FAERS Safety Report 16244607 (Version 4)
Quarter: 2019Q4

REPORT INFORMATION
  Report Type: Spontaneous
  Country: US (occurrence: US)
  Receive Date: 20190426
  Receipt Date: 20191126
  Transmission Date: 20200122
  Serious: Yes (Hospitalization)
  Sender: FDA-Public Use
  Company Number: US-SA-2019SA111394

PATIENT
  Age: 53 Year
  Sex: Male
  Weight: 83.9 kg

DRUGS (27)
  1. FABRAZYME [Suspect]
     Active Substance: AGALSIDASE BETA
     Dosage: 80 MG, QOW
     Route: 041
     Dates: start: 20100430
  2. STERILE WATER [Concomitant]
     Active Substance: WATER
     Dosage: 1 EA, UNK
     Route: 042
     Dates: start: 20190827
  3. EPINEPHRINE. [Concomitant]
     Active Substance: EPINEPHRINE
     Dosage: 0.3 MG, PRN
     Route: 030
     Dates: start: 20160818
  4. ASPIRIN [ACETYLSALICYLIC ACID] [Concomitant]
     Active Substance: ASPIRIN
     Dosage: 81 MG, QD
     Route: 048
     Dates: start: 20160812
  5. SODIUM CHLORIDE. [Concomitant]
     Active Substance: SODIUM CHLORIDE
     Dosage: 0.9 %, UNK
     Route: 041
     Dates: start: 20160812
  6. PLAVIX [Concomitant]
     Active Substance: CLOPIDOGREL BISULFATE
     Dosage: 75 MG, QD
     Route: 048
     Dates: start: 20150219
  7. NORMAL SALINE [Concomitant]
     Active Substance: SODIUM CHLORIDE
     Dosage: 0.9 %, UNK
     Route: 042
     Dates: start: 20190827
  8. EPINEPHRINE. [Concomitant]
     Active Substance: EPINEPHRINE
     Indication: ANAPHYLACTIC REACTION
     Dosage: 0.3 MG, PRN
     Route: 030
     Dates: start: 20190620
  9. ATORVASTATIN [Concomitant]
     Active Substance: ATORVASTATIN
     Dosage: 80 MG, QD
     Route: 048
     Dates: start: 20160504
  10. PLAVIX [Concomitant]
     Active Substance: CLOPIDOGREL BISULFATE
     Dosage: 75 MG, QD
     Route: 048
     Dates: start: 20150218
  11. HEPARIN [Concomitant]
     Active Substance: HEPARIN SODIUM
     Indication: FLUSHING
     Dosage: 100 UN, UNK
     Route: 042
     Dates: start: 20190620
  12. EPINEPHRINE. [Concomitant]
     Active Substance: EPINEPHRINE
     Dosage: 0.3 MG, PRN
     Route: 030
     Dates: start: 20190827
  13. STERILE WATER [Concomitant]
     Active Substance: WATER
     Dosage: 1 DOSE
     Route: 042
     Dates: start: 20190620
  14. LOSARTAN. [Concomitant]
     Active Substance: LOSARTAN
     Dosage: 25 MG, QD
     Route: 048
     Dates: start: 20160504
  15. PROGRAF [Concomitant]
     Active Substance: TACROLIMUS
     Dosage: 2 CAP PO AS DIRECTED
     Route: 048
     Dates: start: 20100429
  16. NORMAL SALINE [Concomitant]
     Active Substance: SODIUM CHLORIDE
     Indication: FLUSHING
     Dosage: 1 DOSE
     Route: 042
     Dates: start: 20190620
  17. SODIUM CHLORIDE. [Concomitant]
     Active Substance: SODIUM CHLORIDE
     Indication: FLUSHING
     Dosage: 0.9 %, UNK (1 DOSE)
     Route: 042
     Dates: start: 20190620
  18. EPIPEN [Concomitant]
     Active Substance: EPINEPHRINE
     Dosage: 0.3 MG, PRN
     Route: 030
     Dates: start: 20160812
  19. CELLCEPT [Concomitant]
     Active Substance: MYCOPHENOLATE MOFETIL\MYCOPHENOLATE MOFETIL HYDROCHLORIDE
     Dosage: 3 CAP PO AS DIRECTED
     Route: 048
     Dates: start: 20100429
  20. FABRAZYME [Suspect]
     Active Substance: AGALSIDASE BETA
     Indication: FABRY^S DISEASE
     Dosage: 90 MG, QOW
     Route: 041
     Dates: start: 20170727
  21. HEPARIN [Concomitant]
     Active Substance: HEPARIN SODIUM
     Dosage: 100 UN, UNK
     Route: 042
     Dates: start: 20190827
  22. NORMAL SALINE [Concomitant]
     Active Substance: SODIUM CHLORIDE
     Dosage: 0.9 %, UNK
     Route: 041
     Dates: start: 20160812
  23. ASPIRIN [ACETYLSALICYLIC ACID] [Concomitant]
     Active Substance: ASPIRIN
     Dosage: 875 MG, QD
     Route: 048
     Dates: start: 20190215
  24. CUBICIN [Concomitant]
     Active Substance: DAPTOMYCIN
     Dosage: 750 MG, QD
     Route: 042
     Dates: start: 20190620
  25. HEPARIN [Concomitant]
     Active Substance: HEPARIN SODIUM
     Dosage: 100 ML, UNK
     Route: 042
     Dates: start: 20160812
  26. SODIUM CHLORIDE. [Concomitant]
     Active Substance: SODIUM CHLORIDE
     Dosage: 0.9 %, UNK
     Route: 042
     Dates: start: 20190827
  27. STERILE WATER [Concomitant]
     Active Substance: WATER
     Dosage: 10 ML, UNK
     Route: 042
     Dates: start: 20160812

REACTIONS (4)
  - Blood pressure increased [Unknown]
  - Debridement [Unknown]
  - Toe amputation [Unknown]
  - Restlessness [Unknown]
